FAERS Safety Report 10626194 (Version 1)
Quarter: 2014Q4

REPORT INFORMATION
  Report Type: Spontaneous
  Country: US (occurrence: US)
  Receive Date: 20141204
  Receipt Date: 20141204
  Transmission Date: 20150529
  Serious: Yes (Other)
  Sender: FDA-Public Use
  Company Number: US-ACTAVIS-2014-26063

PATIENT
  Sex: Female

DRUGS (5)
  1. AZTREONAM. [Concomitant]
     Active Substance: AZTREONAM
     Indication: BETA HAEMOLYTIC STREPTOCOCCAL INFECTION
  2. CLEOCIN HYDROCHLORIDE [Suspect]
     Active Substance: CLINDAMYCIN HYDROCHLORIDE
     Dosage: 600 MG, Q8H
     Route: 042
  3. AZTREONAM. [Concomitant]
     Active Substance: AZTREONAM
     Indication: CELLULITIS
     Dosage: 1 G, Q8H
     Route: 065
  4. CLEOCIN HYDROCHLORIDE [Suspect]
     Active Substance: CLINDAMYCIN HYDROCHLORIDE
     Indication: BETA HAEMOLYTIC STREPTOCOCCAL INFECTION
     Dosage: 300 MG, Q6H
     Route: 048
  5. CLEOCIN HYDROCHLORIDE [Suspect]
     Active Substance: CLINDAMYCIN HYDROCHLORIDE
     Indication: CELLULITIS
     Dosage: 600 MG, UNKNOWN
     Route: 030

REACTIONS (2)
  - Drug ineffective [Unknown]
  - Pathogen resistance [Unknown]
